FAERS Safety Report 12455315 (Version 1)
Quarter: 2016Q2

REPORT INFORMATION
  Report Type: Spontaneous
  Country: US (occurrence: US)
  Receive Date: 20160610
  Receipt Date: 20160610
  Transmission Date: 20160815
  Serious: No
  Sender: FDA-Public Use
  Company Number: US-BAYER-2016-111198

PATIENT
  Age: 2 Year
  Sex: Male

DRUGS (1)
  1. CLARITIN REDITABS [Suspect]
     Active Substance: LORATADINE
     Indication: SEASONAL ALLERGY
     Dosage: 1 DF, UNK
     Route: 048
     Dates: start: 20160603

REACTIONS (1)
  - Wrong drug administered [None]

NARRATIVE: CASE EVENT DATE: 20160603
